FAERS Safety Report 9452561 (Version 2)
Quarter: 2013Q3

REPORT INFORMATION
  Report Type: Spontaneous
  Country: ES (occurrence: ES)
  Receive Date: 20130812
  Receipt Date: 20130828
  Transmission Date: 20140515
  Serious: Yes (Other)
  Sender: FDA-Public Use
  Company Number: ES-RANBAXY-2013R1-72104

PATIENT
  Age: 27 Year
  Sex: Male

DRUGS (8)
  1. OXCARBAZEPINE [Suspect]
     Indication: MENTAL DISORDER
     Dosage: UNK
     Route: 065
  2. OLANZAPINE [Concomitant]
     Indication: MENTAL DISORDER
     Route: 065
  3. CLONAZEPAM [Concomitant]
     Indication: MENTAL DISORDER
     Route: 065
  4. CEFONICID [Concomitant]
     Indication: PRODUCT USED FOR UNKNOWN INDICATION
     Route: 065
  5. CIPROFLOXACIN [Concomitant]
     Indication: PRODUCT USED FOR UNKNOWN INDICATION
     Route: 065
  6. AZITHROMYCIN [Concomitant]
     Indication: PRODUCT USED FOR UNKNOWN INDICATION
     Route: 065
  7. IBUPROFEN [Concomitant]
     Indication: PRODUCT USED FOR UNKNOWN INDICATION
     Route: 065
  8. METAMIZOL [Concomitant]
     Indication: PRODUCT USED FOR UNKNOWN INDICATION
     Route: 065

REACTIONS (1)
  - Drug reaction with eosinophilia and systemic symptoms [Unknown]
